FAERS Safety Report 8534745-9 (Version None)
Quarter: 2012Q3

REPORT INFORMATION
  Report Type: 
  Country: None (occurrence: None)
  Receive Date: 20120724
  Receipt Date: 20120719
  Transmission Date: 20120928
  Serious: Yes (Hospitalization)
  Sender: FDA-Public Use
  Company Number: HU-GLAXOSMITHKLINE-B0816405A

PATIENT
  Sex: Female

DRUGS (2)
  1. ANTIHYPERTENSIVE [Concomitant]
     Indication: HYPERTENSION
  2. FLUTICASONE PROPIONATE/SALMETEROL [Suspect]
     Indication: PRODUCT USED FOR UNKNOWN INDICATION
     Route: 065

REACTIONS (5)
  - FATIGUE [None]
  - ILL-DEFINED DISORDER [None]
  - CHEST DISCOMFORT [None]
  - NAUSEA [None]
  - HEADACHE [None]
